FAERS Safety Report 23710152 (Version 1)
Quarter: 2024Q2

REPORT INFORMATION
  Report Type: Report from Study
  Country: FR (occurrence: FR)
  Receive Date: 20240405
  Receipt Date: 20240405
  Transmission Date: 20240716
  Serious: Yes (Death, Other)
  Sender: FDA-Public Use
  Company Number: FR-CELLTRION HEALTHCARE HUNGARY KFT-2024FR007639

PATIENT
  Age: 70 Year
  Sex: Female

DRUGS (1)
  1. REMICADE [Suspect]
     Active Substance: INFLIXIMAB
     Indication: Pulmonary sarcoidosis
     Dosage: 5 MG/KG EVERY 4 TO 6 WEEKS (MEDIAN, 5 WEEKS)
     Route: 040

REACTIONS (3)
  - Pneumonia [Fatal]
  - Intentional product use issue [Unknown]
  - Off label use [Unknown]
